FAERS Safety Report 15018600 (Version 2)
Quarter: 2019Q2

REPORT INFORMATION
  Report Type: Spontaneous
  Country: FR (occurrence: FR)
  Receive Date: 20180615
  Receipt Date: 20190621
  Transmission Date: 20190711
  Serious: Yes (Other)
  Sender: FDA-Public Use
  Company Number: FR-009507513-1806FRA005704

PATIENT
  Age: 63 Year
  Sex: Female
  Weight: 49 kg

DRUGS (1)
  1. KEYTRUDA [Suspect]
     Active Substance: PEMBROLIZUMAB
     Indication: LUNG ADENOCARCINOMA
     Dosage: 200 MG, UNK
     Route: 041
     Dates: start: 20171201

REACTIONS (1)
  - Adrenocorticotropic hormone deficiency [Unknown]

NARRATIVE: CASE EVENT DATE: 20180323
